FAERS Safety Report 10190564 (Version 1)
Quarter: 2014Q2

REPORT INFORMATION
  Report Type: Spontaneous
  Country: DE (occurrence: DE)
  Receive Date: 20140523
  Receipt Date: 20140523
  Transmission Date: 20141212
  Serious: Yes (Other)
  Sender: FDA-Public Use
  Company Number: GXKR2014DE001954

PATIENT
  Age: 83 Year
  Sex: Female

DRUGS (8)
  1. TRAZODON HEXAL [Suspect]
     Indication: RESTLESSNESS
     Dosage: 50 MG, QD
     Route: 048
     Dates: start: 20140510
  2. PIPAMPERON [Concomitant]
  3. RAMIPRIL [Concomitant]
  4. TORASEMID [Concomitant]
  5. TRAMAL [Concomitant]
  6. EXELON [Concomitant]
  7. RIVASTIGMIN [Concomitant]
  8. MCP//METOCLOPRAMIDE [Concomitant]

REACTIONS (1)
  - Circulatory collapse [Unknown]
